FAERS Safety Report 5743735-0 (Version None)
Quarter: 2008Q2

REPORT INFORMATION
  Report Type: 
  Country: None (occurrence: None)
  Receive Date: 20080516
  Receipt Date: 20080506
  Transmission Date: 20081010
  Serious: Yes (Hospitalization, Other)
  Sender: FDA-Public Use
  Company Number: ADE2008-0192

PATIENT
  Age: 86 Year
  Sex: Male

DRUGS (9)
  1. AMOXICILLIN [Suspect]
     Dates: start: 20071101, end: 20071101
  2. ATENOLOL [Concomitant]
  3. AQUEOUS CREAM [Concomitant]
  4. BENDROFLUOZIDE [Concomitant]
  5. CHLORPHENAMINE [Concomitant]
  6. LACTULOSE [Concomitant]
  7. MENTHOL [Concomitant]
  8. PREDNISOLONE [Concomitant]
  9. URSODIOL [Concomitant]

REACTIONS (7)
  - ALANINE AMINOTRANSFERASE INCREASED [None]
  - BLOOD ALBUMIN INCREASED [None]
  - BLOOD ALKALINE PHOSPHATASE INCREASED [None]
  - BLOOD CHOLESTEROL INCREASED [None]
  - C-REACTIVE PROTEIN INCREASED [None]
  - INTERNATIONAL NORMALISED RATIO INCREASED [None]
  - JAUNDICE [None]
